FAERS Safety Report 21469193 (Version 4)
Quarter: 2022Q4

REPORT INFORMATION
  Report Type: Report from Study
  Country: JP (occurrence: JP)
  Receive Date: 20221018
  Receipt Date: 20221130
  Transmission Date: 20230113
  Serious: Yes (Death, Hospitalization)
  Sender: FDA-Public Use
  Company Number: JP-JNJFOC-20220813542

PATIENT
  Age: 57 Year
  Sex: Male
  Weight: 59.2 kg

DRUGS (19)
  1. AMIVANTAMAB [Suspect]
     Active Substance: AMIVANTAMAB
     Indication: Oesophageal carcinoma
     Dosage: MED KIT 100754,101281,101280; MOST RECENT DOSE ON 15-SEP-2022 11:50 (CYCLE 3, DAY 1), MED KIT 102625
     Route: 042
     Dates: start: 20220721
  2. CODEINE PHOSPHATE [Concomitant]
     Active Substance: CODEINE PHOSPHATE
     Indication: Cough
     Route: 051
     Dates: start: 20220518
  3. TRAZODONE HYDROCHLORIDE [Concomitant]
     Active Substance: TRAZODONE HYDROCHLORIDE
     Indication: Insomnia
     Route: 051
     Dates: start: 20211008
  4. AMOXICILLIN\CLAVULANATE POTASSIUM [Concomitant]
     Active Substance: AMOXICILLIN\CLAVULANATE POTASSIUM
     Indication: Prophylaxis
     Route: 051
     Dates: start: 20220526, end: 20220804
  5. LANSOPRAZOLE [Concomitant]
     Active Substance: LANSOPRAZOLE
     Indication: Gastritis
     Route: 051
     Dates: start: 20211020
  6. TRAMADOL HYDROCHLORIDE [Concomitant]
     Active Substance: TRAMADOL HYDROCHLORIDE
     Indication: Tumour pain
     Route: 051
     Dates: start: 20220419, end: 20220728
  7. TRIAZOLAM [Concomitant]
     Active Substance: TRIAZOLAM
     Indication: Insomnia
     Route: 051
     Dates: start: 20220528
  8. HINE E GEL [Concomitant]
     Indication: Enteral nutrition
     Dosage: 375-750 ML
     Route: 051
     Dates: start: 20211008
  9. DAYVIGO [Concomitant]
     Active Substance: LEMBOREXANT
     Indication: Insomnia
     Route: 051
     Dates: start: 20220727
  10. ALPRAZOLAM [Concomitant]
     Active Substance: ALPRAZOLAM
     Indication: Anxiety
     Route: 051
     Dates: start: 20220727
  11. BROTIZOLAM [Concomitant]
     Active Substance: BROTIZOLAM
     Indication: Insomnia
     Route: 051
     Dates: start: 20220728
  12. MORPHINE SULFATE [Concomitant]
     Active Substance: MORPHINE SULFATE
     Indication: Cough
     Route: 051
     Dates: start: 20220728
  13. MORPHINE SULFATE [Concomitant]
     Active Substance: MORPHINE SULFATE
     Indication: Pain
     Dosage: 10-20 MG
     Route: 051
     Dates: start: 20220805, end: 20220918
  14. MORPHINE SULFATE [Concomitant]
     Active Substance: MORPHINE SULFATE
     Indication: Interstitial lung disease
     Dosage: DOSAGE: OTHER
     Route: 042
     Dates: start: 20220918
  15. BETAMETHASONE SODIUM PHOSPHATE [Concomitant]
     Active Substance: BETAMETHASONE SODIUM PHOSPHATE
     Indication: Dyspnoea
     Dosage: REPORTED AS BETAMETHASONE
     Route: 051
     Dates: start: 20220523, end: 20220803
  16. BETAMETHASONE SODIUM PHOSPHATE [Concomitant]
     Active Substance: BETAMETHASONE SODIUM PHOSPHATE
     Route: 042
     Dates: start: 20220801
  17. MORPHINE HYDROCHLORIDE [Concomitant]
     Active Substance: MORPHINE HYDROCHLORIDE
     Indication: Cough
     Route: 051
     Dates: start: 20220728
  18. MORPHINE HYDROCHLORIDE [Concomitant]
     Active Substance: MORPHINE HYDROCHLORIDE
     Indication: Pain
  19. SODIUM GUALENATE [Concomitant]
     Active Substance: SODIUM GUALENATE
     Indication: Prophylaxis
     Route: 061
     Dates: start: 20220202

REACTIONS (3)
  - Interstitial lung disease [Fatal]
  - Bradycardia [Recovered/Resolved]
  - Dyspnoea [Recovering/Resolving]

NARRATIVE: CASE EVENT DATE: 20220803
